FAERS Safety Report 24142704 (Version 3)
Quarter: 2024Q3

REPORT INFORMATION
  Report Type: Spontaneous
  Country: AR (occurrence: AR)
  Receive Date: 20240726
  Receipt Date: 20240809
  Transmission Date: 20241017
  Serious: No
  Sender: NOVARTIS
  Company Number: AR-002147023-NVSC2024AR151242

PATIENT
  Sex: Female

DRUGS (4)
  1. HYDROCHLOROTHIAZIDE\VALSARTAN [Suspect]
     Active Substance: HYDROCHLOROTHIAZIDE\VALSARTAN
     Indication: Hypertension
     Dosage: 1 DOSAGE FORM, QD
     Route: 048
     Dates: start: 202103
  2. HYDROCHLOROTHIAZIDE\VALSARTAN [Suspect]
     Active Substance: HYDROCHLOROTHIAZIDE\VALSARTAN
     Dosage: 1.5 DOSAGE FORM (18 AUG)
     Route: 065
     Dates: end: 20220901
  3. HYDROCHLOROTHIAZIDE\VALSARTAN [Suspect]
     Active Substance: HYDROCHLOROTHIAZIDE\VALSARTAN
     Dosage: UNK (80/12.5 MG)
     Route: 065
  4. HYDROCHLOROTHIAZIDE\VALSARTAN [Suspect]
     Active Substance: HYDROCHLOROTHIAZIDE\VALSARTAN
     Dosage: 1 DOSAGE FORM, QD
     Route: 065

REACTIONS (11)
  - Malaise [Recovered/Resolved]
  - Depressed mood [Unknown]
  - Pallor [Unknown]
  - Sciatica [Unknown]
  - Hypertension [Unknown]
  - Dizziness [Unknown]
  - Anxiety [Unknown]
  - Blood pressure abnormal [Recovered/Resolved]
  - Product availability issue [Recovered/Resolved]
  - Product use issue [Unknown]
  - Incorrect dose administered [Unknown]
